FAERS Safety Report 15404520 (Version 11)
Quarter: 2020Q2

REPORT INFORMATION
  Report Type: Spontaneous
  Country: US (occurrence: US)
  Receive Date: 20180919
  Receipt Date: 20200427
  Transmission Date: 20200713
  Serious: Yes (Hospitalization)
  Sender: FDA-Public Use
  Company Number: US-ACTELION-A-NJ2018-179055

PATIENT
  Age: 49 Year
  Sex: Female
  Weight: 63.49 kg

DRUGS (11)
  1. ASPIRIN. [Concomitant]
     Active Substance: ASPIRIN
  2. REMODULIN [Concomitant]
     Active Substance: TREPROSTINIL
  3. FUROSEMIDE. [Concomitant]
     Active Substance: FUROSEMIDE
  4. OPSUMIT [Suspect]
     Active Substance: MACITENTAN
     Indication: PULMONARY HYPERTENSION
     Dosage: 10 MG, QD
     Route: 048
     Dates: start: 20170515
  5. PROTONIX [Concomitant]
     Active Substance: PANTOPRAZOLE SODIUM
  6. ONDANSETRON [Concomitant]
     Active Substance: ONDANSETRON
  7. ADEMPAS [Concomitant]
     Active Substance: RIOCIGUAT
  8. TYVASO [Concomitant]
     Active Substance: TREPROSTINIL
  9. SILDENAFIL. [Concomitant]
     Active Substance: SILDENAFIL
  10. SPIRONOLACTONE. [Concomitant]
     Active Substance: SPIRONOLACTONE
  11. TADALAFIL. [Concomitant]
     Active Substance: TADALAFIL

REACTIONS (10)
  - Diarrhoea [Not Recovered/Not Resolved]
  - Abscess [Unknown]
  - Nausea [Unknown]
  - Infusion site pain [Unknown]
  - Paracentesis [Unknown]
  - Infusion site erythema [Unknown]
  - Vomiting [Unknown]
  - Abscess drainage [Unknown]
  - Infusion site abscess [Unknown]
  - Fluid retention [Unknown]

NARRATIVE: CASE EVENT DATE: 20191017
